FAERS Safety Report 4552803-0 (Version None)
Quarter: 2005Q1

REPORT INFORMATION
  Report Type: 
  Country: None (occurrence: None)
  Receive Date: 20050114
  Receipt Date: 20050104
  Transmission Date: 20050727
  Serious: Yes (Hospitalization)
  Sender: FDA-Public Use
  Company Number: US-ROCHE-391661

PATIENT
  Age: 49 Year
  Sex: Female

DRUGS (4)
  1. PEGASYS [Suspect]
     Indication: HEPATITIS C VIRUS
     Route: 058
     Dates: start: 20031101, end: 20040929
  2. COPEGUS [Suspect]
     Indication: HEPATITIS C VIRUS
     Route: 048
     Dates: start: 20031101, end: 20040929
  3. AMBIEN [Concomitant]
     Indication: SLEEP DISORDER
     Route: 048
     Dates: start: 20030615
  4. MIRAPEX [Concomitant]
     Indication: FIBROMYALGIA
     Dosage: 1HS (ONE DOSE FORM AT BEDTIME).
     Route: 048
     Dates: start: 20040715

REACTIONS (5)
  - ARTHROPOD BITE [None]
  - CLOSTRIDIUM COLITIS [None]
  - CONDITION AGGRAVATED [None]
  - FIBROMYALGIA [None]
  - NAUSEA [None]
